FAERS Safety Report 5002496-3 (Version None)
Quarter: 2006Q2

REPORT INFORMATION
  Report Type: 
  Country: None (occurrence: None)
  Receive Date: 20060515
  Receipt Date: 20060505
  Transmission Date: 20061013
  Serious: Yes (Other)
  Sender: FDA-Public Use
  Company Number: GB-MERCK-0605USA01700

PATIENT
  Age: 59 Year
  Sex: Female

DRUGS (3)
  1. PRINIVIL [Suspect]
     Indication: HYPERTENSION
     Route: 048
     Dates: start: 20060418, end: 20060421
  2. NIQUITIN [Suspect]
     Indication: SMOKING CESSATION THERAPY
     Route: 061
     Dates: start: 20060404, end: 20060422
  3. BENDROFLUMETHIAZIDE [Concomitant]
     Indication: HYPERTENSION
     Route: 048
     Dates: start: 20060327

REACTIONS (3)
  - APPLICATION SITE DERMATITIS [None]
  - APPLICATION SITE PRURITUS [None]
  - DRUG INTERACTION [None]
